FAERS Safety Report 4559255-5 (Version None)
Quarter: 2005Q1

REPORT INFORMATION
  Report Type: 
  Country: None (occurrence: None)
  Receive Date: 20050121
  Receipt Date: 20050121
  Transmission Date: 20050727
  Serious: Yes (Death)
  Sender: FDA-Public Use
  Company Number: None

PATIENT
  Age: 44 Year
  Sex: Female
  Weight: 59.648 kg

DRUGS (10)
  1. RISPERDAL M TAB   2MG   JANSSEN [Suspect]
     Indication: SCHIZOPHRENIA
     Dosage: 2MG  BID  ORAL
     Route: 048
     Dates: start: 20041027, end: 20041118
  2. RISPERDAL M TAB   1MG   JANSSEN [Suspect]
     Indication: SCHIZOPHRENIA
     Dosage: 1MG  BID  ORAL
     Route: 048
     Dates: start: 20041027, end: 20041118
  3. SEROQUEL [Concomitant]
  4. DEPAKOTE [Concomitant]
  5. COGENTIN [Concomitant]
  6. BENADRYL [Concomitant]
  7. MOM [Concomitant]
  8. MAALOX MAX [Concomitant]
  9. NTE [Concomitant]
  10. TYLENOL [Concomitant]

REACTIONS (5)
  - COMA [None]
  - DIARRHOEA [None]
  - HEART RATE INCREASED [None]
  - PYREXIA [None]
  - THROMBOTIC THROMBOCYTOPENIC PURPURA [None]
